FAERS Safety Report 14250226 (Version 1)
Quarter: 2017Q4

REPORT INFORMATION
  Report Type: Spontaneous
  Country: US (occurrence: US)
  Receive Date: 20171205
  Receipt Date: 20171205
  Transmission Date: 20180321
  Serious: Yes (Death, Other)
  Sender: FDA-Public Use
  Company Number: US-CIPLA LTD.-2017US21789

PATIENT

DRUGS (1)
  1. BUPROPION HYDROCHLORIDE XL [Suspect]
     Active Substance: BUPROPION HYDROCHLORIDE
     Dosage: UNK, 12 TABLETS
     Route: 048

REACTIONS (4)
  - Cardio-respiratory arrest [Unknown]
  - Toxicity to various agents [Fatal]
  - Seizure [Unknown]
  - Accidental exposure to product by child [Unknown]
